FAERS Safety Report 4493194-3 (Version None)
Quarter: 2004Q4

REPORT INFORMATION
  Report Type: 
  Country: None (occurrence: None)
  Receive Date: 20041104
  Receipt Date: 20040708
  Transmission Date: 20050328
  Serious: Yes (Death)
  Sender: FDA-Public Use
  Company Number: PHFR2004GB02707

PATIENT
  Age: 64 Year
  Sex: Male
  Weight: 96 kg

DRUGS (5)
  1. CLOZARIL [Suspect]
     Indication: SCHIZOPHRENIA
     Dosage: 450 MG/DAY
     Route: 048
     Dates: start: 20040524
  2. CLOZARIL [Suspect]
     Dosage: 400 MG/DAY
     Route: 048
     Dates: start: 20040624
  3. SINEMET [Concomitant]
  4. AMITRIPTYLINE HCL [Concomitant]
     Dosage: 10 MG/DAY
  5. QUETIAPINE [Interacting]
     Dosage: 150MG + 50 MG

REACTIONS (14)
  - ADRENAL ADENOMA [None]
  - ARRHYTHMIA [None]
  - CIRCULATORY COLLAPSE [None]
  - CORONARY ARTERY ATHEROSCLEROSIS [None]
  - CORONARY ARTERY DISEASE [None]
  - DRUG LEVEL INCREASED [None]
  - GASTRITIS HAEMORRHAGIC [None]
  - LIVER DISORDER [None]
  - MYOCARDIAL ISCHAEMIA [None]
  - PARALYSIS [None]
  - PULMONARY CONGESTION [None]
  - PULMONARY OEDEMA [None]
  - SALIVARY HYPERSECRETION [None]
  - URINARY INCONTINENCE [None]
